FAERS Safety Report 8209675-2 (Version None)
Quarter: 2012Q1

REPORT INFORMATION
  Report Type: 
  Country: None (occurrence: None)
  Receive Date: 20120228
  Receipt Date: 20110413
  Transmission Date: 20120608
  Serious: Yes (Hospitalization)
  Sender: FDA-Public Use
  Company Number: WAES 1002USA00900

PATIENT
  Age: 65 Year
  Sex: Male

DRUGS (9)
  1. PREVACID [Concomitant]
  2. ASPIRIN [Concomitant]
  3. GLIPIZIDE [Concomitant]
  4. FLEXERIL [Concomitant]
  5. LOPRESSOR [Concomitant]
  6. ACTOS [Concomitant]
  7. LYRICA [Concomitant]
  8. PRINIVIL [Suspect]
     Indication: PRODUCT USED FOR UNKNOWN INDICATION
     Dosage: 20 MG/UNK/PO
     Route: 048
  9. ONGLYZA [Suspect]
     Indication: DIABETES MELLITUS
     Dosage: UNK/UNK/PO
     Route: 048

REACTIONS (1)
  - PANCREATITIS ACUTE [None]
